FAERS Safety Report 22174739 (Version 2)
Quarter: 2023Q2

REPORT INFORMATION
  Report Type: Spontaneous
  Country: US (occurrence: US)
  Receive Date: 20230405
  Receipt Date: 20230523
  Transmission Date: 20230722
  Serious: Yes (Other)
  Sender: FDA-Public Use
  Company Number: US-BRISTOL-MYERS SQUIBB COMPANY-2023-046235

PATIENT
  Age: 77 Year
  Sex: Male
  Weight: 104 kg

DRUGS (43)
  1. REVLIMID [Suspect]
     Active Substance: LENALIDOMIDE
     Indication: Plasma cell myeloma
     Dosage: 1 X 21/28DAYS
     Route: 048
     Dates: start: 20220714, end: 20230407
  2. REVLIMID [Suspect]
     Active Substance: LENALIDOMIDE
     Route: 048
     Dates: start: 20220808, end: 20220907
  3. REVLIMID [Suspect]
     Active Substance: LENALIDOMIDE
     Route: 048
     Dates: start: 20220907, end: 20221010
  4. REVLIMID [Suspect]
     Active Substance: LENALIDOMIDE
     Route: 048
     Dates: start: 20221010, end: 20221101
  5. REVLIMID [Suspect]
     Active Substance: LENALIDOMIDE
     Route: 048
     Dates: start: 20221101, end: 20221129
  6. REVLIMID [Suspect]
     Active Substance: LENALIDOMIDE
     Route: 048
     Dates: start: 20221129, end: 20230109
  7. REVLIMID [Suspect]
     Active Substance: LENALIDOMIDE
     Route: 048
     Dates: start: 20230109, end: 20230203
  8. REVLIMID [Suspect]
     Active Substance: LENALIDOMIDE
     Route: 048
     Dates: start: 20230203, end: 20230302
  9. REVLIMID [Suspect]
     Active Substance: LENALIDOMIDE
     Route: 048
     Dates: start: 20230302
  10. REVLIMID [Suspect]
     Active Substance: LENALIDOMIDE
     Route: 048
     Dates: start: 20220711, end: 20220808
  11. REVLIMID [Suspect]
     Active Substance: LENALIDOMIDE
     Dosage: 1 CAPSULE DAILY FOR 21 DAYS AND HOLD FOR 7 DAYS
     Route: 048
  12. REVLIMID [Suspect]
     Active Substance: LENALIDOMIDE
     Dosage: ONCE DAILY ON DAYS 1 - 21 IN 28 DAY CYCLE
     Route: 048
     Dates: start: 20230403
  13. ACYCLOVIR [Concomitant]
     Active Substance: ACYCLOVIR
     Indication: Infection prophylaxis
     Route: 048
     Dates: start: 20220711
  14. ALLOPURINOL [Concomitant]
     Active Substance: ALLOPURINOL
     Indication: Product used for unknown indication
     Dosage: QD
     Route: 048
     Dates: start: 20220711
  15. CALCIUM\VITAMIN D [Concomitant]
     Active Substance: CALCIUM\VITAMIN D
     Indication: Product used for unknown indication
     Dosage: 600-5 MG
     Route: 048
     Dates: start: 20221102
  16. CARVEDILOL [Concomitant]
     Active Substance: CARVEDILOL
     Indication: Product used for unknown indication
     Dosage: QD
     Route: 048
     Dates: start: 20220711
  17. CYCLOPENTOLATE HYDROCHLORIDE [Concomitant]
     Active Substance: CYCLOPENTOLATE HYDROCHLORIDE
     Indication: Product used for unknown indication
     Dosage: BID
     Route: 047
     Dates: start: 20220712, end: 20221102
  18. DEXAMETHASONE [Concomitant]
     Active Substance: DEXAMETHASONE
     Indication: Product used for unknown indication
     Route: 048
     Dates: start: 20220711
  19. DEXAMETHASONE [Concomitant]
     Active Substance: DEXAMETHASONE
     Dosage: EVERY MORNING PRIOR TO INJECTION
     Dates: start: 20220711
  20. ELIQUIS [Concomitant]
     Active Substance: APIXABAN
     Indication: Product used for unknown indication
     Dosage: BID
     Route: 048
     Dates: start: 20220711
  21. FARXIGA [Concomitant]
     Active Substance: DAPAGLIFLOZIN PROPANEDIOL
     Indication: Product used for unknown indication
     Dosage: QD
     Route: 048
     Dates: start: 20220711
  22. FUROSEMIDE [Concomitant]
     Active Substance: FUROSEMIDE
     Indication: Product used for unknown indication
     Route: 048
     Dates: start: 20220711
  23. LATANOPROST [Concomitant]
     Active Substance: LATANOPROST
     Indication: Product used for unknown indication
     Dosage: QD
     Route: 047
     Dates: start: 20220712
  24. MULTAQ [Concomitant]
     Active Substance: DRONEDARONE
     Indication: Product used for unknown indication
     Dosage: BID
     Route: 048
     Dates: start: 20220711
  25. NITROGLYCERIN [Concomitant]
     Active Substance: NITROGLYCERIN
     Indication: Product used for unknown indication
     Dosage: PRN
     Route: 060
     Dates: start: 20221102
  26. NITROGLYCERIN [Concomitant]
     Active Substance: NITROGLYCERIN
     Route: 060
     Dates: start: 20221102
  27. PRAVASTATIN SODIUM [Concomitant]
     Active Substance: PRAVASTATIN SODIUM
     Indication: Product used for unknown indication
     Dosage: QD
     Route: 048
     Dates: start: 20220711
  28. PREDNISOLONE ACETATE [Concomitant]
     Active Substance: PREDNISOLONE ACETATE
     Indication: Product used for unknown indication
     Dosage: BID, PRN
     Route: 047
     Dates: start: 20220712
  29. CARBOXYMETHYLCELLULOSE SODIUM [Concomitant]
     Active Substance: CARBOXYMETHYLCELLULOSE SODIUM
     Indication: Product used for unknown indication
     Dosage: DROPS SOLUTION
     Dates: start: 20221102
  30. SIMBRINZA [Concomitant]
     Active Substance: BRIMONIDINE TARTRATE\BRINZOLAMIDE
     Indication: Product used for unknown indication
     Dosage: 1-0.2%
     Route: 047
     Dates: start: 20221102
  31. SODIUM BICARBONATE [Concomitant]
     Active Substance: SODIUM BICARBONATE
     Indication: Product used for unknown indication
     Dosage: BID
     Route: 048
     Dates: start: 20220711, end: 20221102
  32. TIMOLOL MALEATE [Concomitant]
     Active Substance: TIMOLOL MALEATE
     Indication: Product used for unknown indication
     Dosage: QD
     Route: 047
     Dates: start: 20220712
  33. VERAPAMIL HCL [Concomitant]
     Active Substance: VERAPAMIL HYDROCHLORIDE
     Indication: Product used for unknown indication
     Dosage: QD
     Route: 048
     Dates: start: 20220711
  34. ERGOCALCIFEROL [Concomitant]
     Active Substance: ERGOCALCIFEROL
     Indication: Product used for unknown indication
     Dosage: WEEKLY
     Route: 048
     Dates: start: 20220711
  35. DARZALEX [Concomitant]
     Active Substance: DARATUMUMAB
     Indication: Product used for unknown indication
     Dosage: CYCLES 3 TO 6: 16 MG/KG IV ONCE PER DAY ON DAYS 1 AND 15
     Route: 042
  36. DARZALEX [Concomitant]
     Active Substance: DARATUMUMAB
     Dosage: CYCLE 7 ONWARDS: 16 MG/KG IV ONCE ON DAY 1
     Route: 042
  37. DARZALEX [Concomitant]
     Active Substance: DARATUMUMAB
     Dosage: CYCIES 1 AND 2: 16 MG/KG IV ONCE PER DAY ON DAYS 1, 8, 15, 22
     Route: 042
  38. CLINDAMYCIN HYDROCHLORIDE [Concomitant]
     Active Substance: CLINDAMYCIN HYDROCHLORIDE
     Indication: Product used for unknown indication
     Dosage: EVERY 6 HOURS ONCE FOR A WEEK
     Route: 048
  39. DIPHENHYDRAMINE [Concomitant]
     Active Substance: DIPHENHYDRAMINE
     Indication: Product used for unknown indication
     Dosage: DISINTEGRATING TABLET, 1 TABLET ECERY THURSDAY
  40. ONDANSETRON [Concomitant]
     Active Substance: ONDANSETRON
     Indication: Nausea
     Dosage: DISINTEGRATING TABLET
  41. PAXLOVID [Concomitant]
     Active Substance: NIRMATRELVIR\RITONAVIR
     Indication: Product used for unknown indication
     Dosage: 150 MG-100 MG TABLET
  42. XGEVA [Concomitant]
     Active Substance: DENOSUMAB
     Indication: Product used for unknown indication
     Dosage: 120 MG/1.7 ML (70 MG/ML), SUBCUTANEOUS SOLUTION
     Route: 058
  43. DENOSUMAB [Concomitant]
     Active Substance: DENOSUMAB
     Indication: Product used for unknown indication
     Dates: start: 20220926

REACTIONS (1)
  - Thrombocytopenia [Recovered/Resolved]

NARRATIVE: CASE EVENT DATE: 20230330
